FAERS Safety Report 12988857 (Version 1)
Quarter: 2016Q4

REPORT INFORMATION
  Report Type: Report from Study
  Country: CN (occurrence: CN)
  Receive Date: 20161130
  Receipt Date: 20161130
  Transmission Date: 20170207
  Serious: Yes (Death, Other)
  Sender: FDA-Public Use
  Company Number: CN-ROCHE-1859134

PATIENT

DRUGS (3)
  1. CYCLOSPORINE A [Suspect]
     Active Substance: CYCLOSPORINE
     Dosage: AFTER TRANSPLANTATION
     Route: 048
  2. MYCOPHENOLATE MOFETIL. [Suspect]
     Active Substance: MYCOPHENOLATE MOFETIL
     Indication: PROPHYLAXIS AGAINST GRAFT VERSUS HOST DISEASE
     Dosage: 20-30 MG/KG, 1 D BEFORE TRANSPLANTATION
     Route: 048
  3. CYCLOSPORINE A [Suspect]
     Active Substance: CYCLOSPORINE
     Indication: PROPHYLAXIS AGAINST GRAFT VERSUS HOST DISEASE
     Dosage: 200-400 MCG/L
     Route: 041

REACTIONS (14)
  - Hyponatraemia [Unknown]
  - Infection [Fatal]
  - Lung infection [Fatal]
  - Central nervous system fungal infection [Unknown]
  - Graft versus host disease in gastrointestinal tract [Fatal]
  - Cytomegalovirus infection [Unknown]
  - Cystitis haemorrhagic [Recovering/Resolving]
  - Post transplant lymphoproliferative disorder [Recovering/Resolving]
  - Epstein-Barr virus infection [Recovered/Resolved]
  - Urine sodium increased [Unknown]
  - Pulmonary mycosis [Unknown]
  - Central nervous system infection [Fatal]
  - Haemorrhage intracranial [Fatal]
  - Epilepsy [Unknown]
